FAERS Safety Report 4686757-3 (Version None)
Quarter: 2005Q2

REPORT INFORMATION
  Report Type: 
  Country: None (occurrence: None)
  Receive Date: 20050608
  Receipt Date: 20050526
  Transmission Date: 20051028
  Serious: Yes (Hospitalization)
  Sender: FDA-Public Use
  Company Number: 2005080315

PATIENT
  Age: 50 Year
  Sex: Male

DRUGS (2)
  1. SULFASALAZINE [Suspect]
     Indication: COLITIS ULCERATIVE
     Dosage: 8000  MG, ORAL
     Route: 048
     Dates: start: 20020116, end: 20020327
  2. BIOFERMIN R (STREPTOCOCCUS FAECALIS) [Concomitant]

REACTIONS (1)
  - GRANULOCYTOPENIA [None]
